FAERS Safety Report 18043194 (Version 1)
Quarter: 2020Q3

REPORT INFORMATION
  Report Type: Spontaneous
  Country: US (occurrence: US)
  Receive Date: 20200720
  Receipt Date: 20200720
  Transmission Date: 20201103
  Serious: Yes (Hospitalization)
  Sender: FDA-Public Use
  Company Number: US-PFIZER INC-2020272817

PATIENT
  Age: 50 Year
  Sex: Female

DRUGS (4)
  1. BOSULIF [Suspect]
     Active Substance: BOSUTINIB MONOHYDRATE
     Indication: CHRONIC MYELOID LEUKAEMIA
     Dosage: UNK
  2. GLEEVEC [Suspect]
     Active Substance: IMATINIB MESYLATE
     Dosage: UNK
  3. TASIGNA [Suspect]
     Active Substance: NILOTINIB
     Dosage: UNK
  4. SPRYCEL [Suspect]
     Active Substance: DASATINIB
     Dosage: UNK

REACTIONS (6)
  - Renal failure [Unknown]
  - Eye disorder [Not Recovered/Not Resolved]
  - Neoplasm progression [Unknown]
  - Bone pain [Not Recovered/Not Resolved]
  - Fatigue [Not Recovered/Not Resolved]
  - Myalgia [Not Recovered/Not Resolved]
